FAERS Safety Report 15768029 (Version 4)
Quarter: 2019Q2

REPORT INFORMATION
  Report Type: Spontaneous
  Country: JP (occurrence: JP)
  Receive Date: 20181227
  Receipt Date: 20190429
  Transmission Date: 20190711
  Serious: Yes (Death, Life-Threatening, Hospitalization)
  Sender: FDA-Public Use
  Company Number: JP-PFIZER INC-2018510307

PATIENT
  Age: 70 Year
  Sex: Female
  Weight: 32.3 kg

DRUGS (12)
  1. MESTINON [Concomitant]
     Active Substance: PYRIDOSTIGMINE BROMIDE
     Dosage: 60 MG, 2X/DAY
     Route: 048
  2. EPADEL-S [Concomitant]
     Active Substance: ICOSAPENT ETHYL
     Dosage: 600 MG, 3X/DAY
     Route: 048
  3. VITAMEDIN [BENFOTIAMINE;CYANOCOBALAMIN;PYRIDOXINE HYDROCHLORIDE] [Concomitant]
     Dosage: 1 DF, 3X/DAY
     Route: 048
  4. BONALON [Concomitant]
     Active Substance: ALENDRONATE SODIUM
     Dosage: 35 MG, 1X/DAY
     Route: 048
  5. LORBRENA [Suspect]
     Active Substance: LORLATINIB
     Indication: LUNG NEOPLASM MALIGNANT
     Dosage: 100 MG, 1X/DAY
     Route: 048
     Dates: start: 20181207, end: 20181218
  6. METHYCOBAL [Concomitant]
     Active Substance: METHYLCOBALAMIN
     Dosage: 500 MG, 3X/DAY
     Route: 048
  7. LATANOPROST. [Concomitant]
     Active Substance: LATANOPROST
     Dosage: UNK UNK, 4X/DAY
     Route: 031
  8. JUVELA N [Concomitant]
     Active Substance: TOCOPHERYL NICOTINATE, D-.ALPHA.
     Dosage: 200 MG, 3X/DAY
     Route: 048
  9. ROCALTROL [Concomitant]
     Active Substance: CALCITRIOL
     Dosage: 0.25 UG, 2X/DAY
     Route: 048
  10. SHIGMABITAN [BENFOTIAMINE;CYANOCOBALAMIN;PYRIDOXINE HYDROCHLORIDE] [Concomitant]
     Dosage: 1 DF, 3X/DAY
     Route: 048
  11. ALPHAGAN P [Concomitant]
     Active Substance: BRIMONIDINE TARTRATE
     Dosage: UNK UNK, 4X/DAY
     Route: 031
  12. CHOCOLA A [RETINOL] [Concomitant]
     Dosage: 10000 IU, 2X/DAY
     Route: 048

REACTIONS (5)
  - Pneumonia aspiration [Fatal]
  - Cardiac failure [Fatal]
  - Pleural effusion [Fatal]
  - Hypoxia [Fatal]
  - Neoplasm progression [Fatal]

NARRATIVE: CASE EVENT DATE: 20181219
